FAERS Safety Report 8879673 (Version 1)
Quarter: 2012Q4

REPORT INFORMATION
  Report Type: 
  Country: FR (occurrence: FR)
  Receive Date: 20121031
  Receipt Date: 20121031
  Transmission Date: 20130627
  Serious: Yes (Other)
  Sender: FDA-Public Use
  Company Number: FR-GLAXOSMITHKLINE-B0837927A

PATIENT
  Age: 78 None
  Sex: Female
  Weight: 56.2 kg

DRUGS (7)
  1. LAMICTAL [Suspect]
     Indication: BIPOLAR DISORDER
     Route: 048
     Dates: start: 201207, end: 20121015
  2. DAFALGAN [Concomitant]
     Indication: PAIN
     Dosage: 1000MG Three times per day
     Route: 048
  3. CHOLECALCIFEROL [Concomitant]
     Indication: OSTEOPOROSIS
     Dosage: 200000IU Cyclic
     Route: 048
  4. TEMESTA [Concomitant]
     Indication: ANXIETY
     Dosage: 1MG Per day
     Route: 048
  5. FORLAX [Concomitant]
     Indication: ILL-DEFINED DISORDER
     Dosage: 2SAC Per day
     Route: 048
  6. LEVEMIR [Concomitant]
     Indication: TYPE 2 DIABETES MELLITUS
     Route: 058
  7. APIDRA [Concomitant]
     Indication: TYPE 2 DIABETES MELLITUS
     Route: 058

REACTIONS (5)
  - Psychotic disorder [Not Recovered/Not Resolved]
  - Sleep disorder [Not Recovered/Not Resolved]
  - Delirium [Not Recovered/Not Resolved]
  - Delusional disorder, erotomanic type [Not Recovered/Not Resolved]
  - Elevated mood [Not Recovered/Not Resolved]
